FAERS Safety Report 7291454-4 (Version None)
Quarter: 2011Q1

REPORT INFORMATION
  Report Type: 
  Country: None (occurrence: None)
  Receive Date: 20110214
  Receipt Date: 20110208
  Transmission Date: 20110831
  Serious: Yes (Other)
  Sender: FDA-Public Use
  Company Number: DE-PFIZER INC-2011027881

PATIENT
  Age: 3 Day

DRUGS (1)
  1. ZELDOX [Suspect]
     Dosage: UNK
     Route: 064

REACTIONS (3)
  - HYPOGLYCAEMIA [None]
  - DRUG EXPOSURE DURING PREGNANCY [None]
  - UNDERWEIGHT [None]
